FAERS Safety Report 14926589 (Version 2)
Quarter: 2018Q4

REPORT INFORMATION
  Report Type: Spontaneous
  Country: FR (occurrence: FR)
  Receive Date: 20180523
  Receipt Date: 20181116
  Transmission Date: 20190204
  Serious: Yes (Other)
  Sender: FDA-Public Use
  Company Number: FR-MERCK KGAA-2048265

PATIENT
  Sex: Female

DRUGS (1)
  1. EUTHYROX [Suspect]
     Active Substance: LEVOTHYROXINE SODIUM
     Indication: PRODUCT USED FOR UNKNOWN INDICATION

REACTIONS (22)
  - Depression [None]
  - Feeling of despair [None]
  - Skin exfoliation [None]
  - Personal relationship issue [None]
  - Personality disorder [None]
  - Muscle spasms [None]
  - Reaction to excipient [None]
  - Alopecia [None]
  - Initial insomnia [None]
  - Fatigue [None]
  - Impaired work ability [None]
  - Blood thyroid stimulating hormone decreased [None]
  - Palpitations [None]
  - Electrocardiogram PR shortened [None]
  - Social avoidant behaviour [None]
  - Muscle strain [None]
  - Constipation [None]
  - Panic attack [None]
  - Dyspnoea [None]
  - Crying [None]
  - Mood swings [None]
  - Insomnia [None]
